FAERS Safety Report 26207246 (Version 1)
Quarter: 2025Q4

REPORT INFORMATION
  Report Type: Spontaneous
  Country: EU (occurrence: EU)
  Receive Date: 20251229
  Receipt Date: 20251229
  Transmission Date: 20260118
  Serious: Yes (Other)
  Sender: AMGEN
  Company Number: EU-AMGEN-ESPSP2025254601

PATIENT

DRUGS (1)
  1. BEVACIZUMAB [Suspect]
     Active Substance: BEVACIZUMAB
     Indication: Neurofibromatosis
     Dosage: UNK
     Route: 065

REACTIONS (6)
  - Ventricular hypertrophy [Unknown]
  - Microalbuminuria [Unknown]
  - Renal artery stenosis [Unknown]
  - Haematuria [Unknown]
  - Proteinuria [Unknown]
  - Off label use [Unknown]
